FAERS Safety Report 4902296-6 (Version None)
Quarter: 2006Q1

REPORT INFORMATION
  Report Type: 
  Country: None (occurrence: None)
  Receive Date: 20060202
  Receipt Date: 20060123
  Transmission Date: 20060701
  Serious: Yes (Congenital Anomaly)
  Sender: FDA-Public Use
  Company Number: CH-GDP-0511971

PATIENT
  Sex: Male

DRUGS (4)
  1. DIFFERIN [Suspect]
     Indication: ACNE
     Dosage: 1 APP QD TL
     Route: 061
     Dates: start: 20040101, end: 20040118
  2. DALACIN-T [Suspect]
     Indication: ACNE
     Dosage: 1 APP QD TL
     Route: 061
     Dates: start: 20040101, end: 20040118
  3. LUBEX [Concomitant]
  4. ITINEROL [Concomitant]

REACTIONS (20)
  - ARRHYTHMIA [None]
  - ATRIAL SEPTAL DEFECT [None]
  - ATRIAL TACHYCARDIA [None]
  - CONGENITAL ANOMALY [None]
  - CONGENITAL HEART VALVE DISORDER [None]
  - DANDY-WALKER SYNDROME [None]
  - DEXTROCARDIA [None]
  - DRUG EXPOSURE DURING PREGNANCY [None]
  - ECTOPIC KIDNEY [None]
  - FEEDING DISORDER NEONATAL [None]
  - FOETAL GROWTH RETARDATION [None]
  - HEART DISEASE CONGENITAL [None]
  - HYPOSPADIAS [None]
  - INGUINAL HERNIA [None]
  - PERSISTENT LEFT SUPERIOR VENA CAVA [None]
  - PULMONARY HYPOPLASIA [None]
  - PULMONARY MALFORMATION [None]
  - PULMONARY SEQUESTRATION [None]
  - SCIMITAR SYNDROME [None]
  - VENTRICULAR EXTRASYSTOLES [None]
